FAERS Safety Report 4809916-5 (Version None)
Quarter: 2005Q4

REPORT INFORMATION
  Report Type: 
  Country: None (occurrence: None)
  Receive Date: 20051024
  Receipt Date: 20050808
  Transmission Date: 20060501
  Serious: Yes (Other)
  Sender: FDA-Public Use
  Company Number: 2005113154

PATIENT
  Age: 69 Year
  Sex: Female
  Weight: 65.7716 kg

DRUGS (7)
  1. CELEBREX [Suspect]
     Indication: ARTHRALGIA
  2. SYNTHROID [Concomitant]
  3. ACCUPRIL [Concomitant]
  4. DILTIAZEM [Concomitant]
  5. LASIX [Concomitant]
  6. ZOLOFT [Concomitant]
  7. IBUPROFEN [Concomitant]

REACTIONS (14)
  - BEDRIDDEN [None]
  - BODY HEIGHT DECREASED [None]
  - BREAST CANCER [None]
  - BURN OF INTERNAL ORGANS [None]
  - CEREBROVASCULAR ACCIDENT [None]
  - COLONIC POLYP [None]
  - CONSTIPATION [None]
  - DIABETES MELLITUS [None]
  - DIARRHOEA [None]
  - DIVERTICULITIS [None]
  - TRANSIENT ISCHAEMIC ATTACK [None]
  - ULCER [None]
  - VOMITING [None]
  - WEIGHT DECREASED [None]
